FAERS Safety Report 26027640 (Version 1)
Quarter: 2025Q4

REPORT INFORMATION
  Report Type: Spontaneous
  Country: CN (occurrence: CN)
  Receive Date: 20251111
  Receipt Date: 20251111
  Transmission Date: 20260118
  Serious: Yes (Other)
  Sender: PFIZER
  Company Number: CN-PFIZER INC-PV202500131513

PATIENT
  Age: 67 Year
  Sex: Male
  Weight: 85 kg

DRUGS (1)
  1. CYTARABINE [Suspect]
     Active Substance: CYTARABINE
     Indication: Central nervous system lymphoma
     Dosage: 2 G, 1X/DAY
     Route: 041
     Dates: start: 20250610, end: 20250610

REACTIONS (3)
  - Hyperpyrexia [Recovered/Resolved]
  - Chills [Recovered/Resolved]
  - Diarrhoea [Recovered/Resolved]

NARRATIVE: CASE EVENT DATE: 20250610
